FAERS Safety Report 6089326-6 (Version None)
Quarter: 2009Q1

REPORT INFORMATION
  Report Type: 
  Country: None (occurrence: None)
  Receive Date: 20090224
  Receipt Date: 20090210
  Transmission Date: 20090719
  Serious: Yes (Hospitalization, Other)
  Sender: FDA-Public Use
  Company Number: PHHY2009FR04991

PATIENT
  Age: 80 Year
  Sex: Male

DRUGS (3)
  1. VOLTARENE [Suspect]
     Indication: ARTHRALGIA
     Dosage: 1 DF, QD
     Dates: start: 20081211
  2. HEPARIN SODIUM [Concomitant]
     Dosage: UNK
     Dates: end: 20081224
  3. LOVENOX [Concomitant]
     Dosage: UNK
     Dates: end: 20081224

REACTIONS (4)
  - ABDOMINAL PAIN [None]
  - CHILLS [None]
  - ILEITIS [None]
  - ISCHAEMIA [None]
